FAERS Safety Report 5380965-4 (Version None)
Quarter: 2007Q3

REPORT INFORMATION
  Report Type: 
  Country: None (occurrence: None)
  Receive Date: 20070702
  Receipt Date: 20060727
  Transmission Date: 20080115
  Serious: Yes (Hospitalization)
  Sender: FDA-Public Use
  Company Number: SPV1-2006-00315

PATIENT
  Age: 28 Year
  Sex: Female

DRUGS (3)
  1. PENTASA [Suspect]
     Indication: COLITIS ULCERATIVE
     Dosage: 1500MG DAILY, ORAL, 750MG, 3XDAY:TID
     Route: 048
     Dates: start: 20000101, end: 20050501
  2. PENTASA [Suspect]
     Indication: COLITIS ULCERATIVE
     Dosage: 1500MG DAILY, ORAL, 750MG, 3XDAY:TID
     Route: 048
     Dates: start: 20050501, end: 20060322
  3. FERROUS CITRATE [Concomitant]

REACTIONS (1)
  - NEPHRITIS INTERSTITIAL [None]
